FAERS Safety Report 19393738 (Version 1)
Quarter: 2021Q2

REPORT INFORMATION
  Report Type: Spontaneous
  Country: US (occurrence: US)
  Receive Date: 20210608
  Receipt Date: 20210608
  Transmission Date: 20210717
  Serious: Yes (Hospitalization)
  Sender: FDA-Public Use
  Company Number: None

PATIENT
  Age: 73 Year
  Sex: Female
  Weight: 80.5 kg

DRUGS (21)
  1. CLOTRIMAZOLE 1% CREAM [Concomitant]
     Active Substance: CLOTRIMAZOLE
  2. SPIRONOLACTONE 25MG [Concomitant]
     Active Substance: SPIRONOLACTONE
  3. ISOSORBIDE DINITRATE 30MG [Concomitant]
  4. METOPROLOL. [Concomitant]
     Active Substance: METOPROLOL
  5. MIRTAZAPINE 15MG [Concomitant]
     Active Substance: MIRTAZAPINE
  6. FLUCONAZOLE 200MG [Concomitant]
     Active Substance: FLUCONAZOLE
  7. BUSPIRONE 7.5MG [Concomitant]
  8. INSULIN ASPART UNITS DOSED PER SS [Concomitant]
  9. TOUJEO (300U/ML) [Concomitant]
  10. ATORVASTATIN 40MG [Concomitant]
     Active Substance: ATORVASTATIN
  11. CALCIUM CITRATE [Concomitant]
     Active Substance: CALCIUM CITRATE
  12. FLUTICASONE NASAL SPRAY [Concomitant]
     Active Substance: FLUTICASONE
  13. TORSEMIDE 20G [Concomitant]
  14. ALBUTEROL INHALER [Concomitant]
     Active Substance: ALBUTEROL
  15. CLOPIDOGREL [Concomitant]
     Active Substance: CLOPIDOGREL BISULFATE
  16. FAMOTIDINE 20MG [Concomitant]
     Active Substance: FAMOTIDINE
  17. METOLAZONE 2.5MG [Concomitant]
     Active Substance: METOLAZONE
  18. BAMLANIVIMAB/ETESEVIMAB [Suspect]
     Active Substance: BAMLANIVIMAB\ETESEVIMAB
     Indication: SARS-COV-2 TEST POSITIVE
     Dosage: ?          OTHER FREQUENCY:ONCE;?
     Route: 042
     Dates: start: 20210520, end: 20210520
  19. ASPIRIN 81MG [Concomitant]
     Active Substance: ASPIRIN
  20. ENTRESTO 49/51MG [Concomitant]
  21. ERGOCALCIFEROL 1.25MG [Concomitant]
     Active Substance: ERGOCALCIFEROL

REACTIONS (2)
  - Oxygen saturation decreased [None]
  - COVID-19 pneumonia [None]

NARRATIVE: CASE EVENT DATE: 20210529
